FAERS Safety Report 18181991 (Version 1)
Quarter: 2020Q3

REPORT INFORMATION
  Report Type: Spontaneous
  Country: CH (occurrence: CH)
  Receive Date: 20200821
  Receipt Date: 20200821
  Transmission Date: 20201103
  Serious: Yes (Life-Threatening, Hospitalization, Other)
  Sender: FDA-Public Use
  Company Number: CH-JNJFOC-20200824516

PATIENT
  Age: 73 Year
  Sex: Male

DRUGS (16)
  1. FLUCONAZOL [Concomitant]
     Active Substance: FLUCONAZOLE
     Dosage: 200 MG, ONCE
     Dates: start: 20200801, end: 20200801
  2. NOVALGIN (METAMIZOLE SODIUM) [Suspect]
     Active Substance: METAMIZOLE SODIUM
     Dosage: 1000 MG, UNK
     Route: 048
     Dates: end: 20200801
  3. ELTROXIN [Concomitant]
     Active Substance: LEVOTHYROXINE
     Dosage: .05 MG, UNK
     Route: 048
  4. SEQUASE [Concomitant]
     Active Substance: QUETIAPINE FUMARATE
     Dosage: 200 MG, UNK
     Route: 048
  5. CREON [Concomitant]
     Active Substance: PANCRELIPASE AMYLASE\PANCRELIPASE LIPASE\PANCRELIPASE PROTEASE
     Dosage: 25000 IU, TID
     Route: 048
  6. ACIDUM FOLICUM [Concomitant]
     Active Substance: FOLIC ACID
     Dosage: 5 MG, UNK
     Route: 048
  7. DAFALGAN [Concomitant]
     Active Substance: ACETAMINOPHEN
     Dosage: 1000 MG, UNK
     Route: 048
  8. FLUCONAZOL [Concomitant]
     Active Substance: FLUCONAZOLE
     Dosage: 50 MG, 1?0?0?0
     Route: 048
     Dates: start: 20200611
  9. RIVAROXABAN [Suspect]
     Active Substance: RIVAROXABAN
     Indication: PRODUCT USED FOR UNKNOWN INDICATION
     Dosage: 20 MG, UNK
     Route: 048
  10. METHOTREXATE FARMOS [METHOTREXATE] [Suspect]
     Active Substance: METHOTREXATE
     Dosage: 20 MG, UNK WEEKLY
     Route: 048
     Dates: start: 201109, end: 20200729
  11. TORASEMIDUM [Concomitant]
     Dosage: 10 MG, UNK
     Route: 048
  12. METFORMIN [Concomitant]
     Active Substance: METFORMIN HYDROCHLORIDE
     Dosage: 1000 MG, UNK
     Route: 048
  13. LUVIT D3 [Concomitant]
     Active Substance: CHOLECALCIFEROL
     Dosage: 4000 IU (2 ML)
     Route: 048
  14. ORFIRIL [Suspect]
     Active Substance: VALPROATE SODIUM
     Dosage: 1500 MG, UNK
     Route: 048
  15. TEMESTA [LORAZEPAM] [Concomitant]
     Active Substance: LORAZEPAM
     Dosage: .5 MG, UNK
     Route: 048
  16. MADOPAR [Concomitant]
     Active Substance: BENSERAZIDE HYDROCHLORIDE\LEVODOPA
     Dosage: 125 MG, UNK
     Route: 048

REACTIONS (2)
  - Pancytopenia [Not Recovered/Not Resolved]
  - Febrile neutropenia [Not Recovered/Not Resolved]

NARRATIVE: CASE EVENT DATE: 20200801
